FAERS Safety Report 7534142-9 (Version None)
Quarter: 2011Q2

REPORT INFORMATION
  Report Type: 
  Country: None (occurrence: None)
  Receive Date: 20110608
  Receipt Date: 20061026
  Transmission Date: 20111010
  Serious: Yes (Other)
  Sender: FDA-Public Use
  Company Number: PHFR2006GB03189

PATIENT
  Sex: Male

DRUGS (1)
  1. CLOZAPINE [Suspect]
     Indication: SCHIZOPHRENIA
     Route: 048
     Dates: start: 20060327

REACTIONS (4)
  - CHROMATURIA [None]
  - URINARY TRACT INFECTION [None]
  - PYREXIA [None]
  - MALAISE [None]
